FAERS Safety Report 5226762-1 (Version None)
Quarter: 2007Q1

REPORT INFORMATION
  Report Type: 
  Country: None (occurrence: None)
  Receive Date: 20070130
  Receipt Date: 20070111
  Transmission Date: 20070707
  Serious: Yes (Other)
  Sender: FDA-Public Use
  Company Number: NL-GDP-0714101

PATIENT
  Age: 47 Year
  Sex: Female

DRUGS (2)
  1. METVIX (METHYL AMINOLEVULINATE HYDROCHLORIDE) [Suspect]
     Indication: BASAL CELL CARCINOMA
     Dosage: 1 APP ONCE
     Route: 061
     Dates: start: 20070109, end: 20070109
  2. PARACETAMOL [Concomitant]

REACTIONS (9)
  - EYELID OEDEMA [None]
  - FATIGUE [None]
  - HEADACHE [None]
  - HYPOAESTHESIA ORAL [None]
  - NAUSEA [None]
  - OEDEMA PERIPHERAL [None]
  - PALPITATIONS [None]
  - PRURITUS GENERALISED [None]
  - URTICARIA [None]
